FAERS Safety Report 15278114 (Version 18)
Quarter: 2020Q2

REPORT INFORMATION
  Report Type: Spontaneous
  Country: US (occurrence: US)
  Receive Date: 20180814
  Receipt Date: 20200521
  Transmission Date: 20200713
  Serious: Yes (Hospitalization)
  Sender: FDA-Public Use
  Company Number: US-ACTELION-A-NJ2018-177181

PATIENT
  Age: 46 Year
  Sex: Female
  Weight: 67.12 kg

DRUGS (23)
  1. ESCITALOPRAM [Concomitant]
     Active Substance: ESCITALOPRAM OXALATE
  2. PREDNISONE. [Concomitant]
     Active Substance: PREDNISONE
  3. ADEMPAS [Concomitant]
     Active Substance: RIOCIGUAT
  4. LEVOTHYROXINE. [Concomitant]
     Active Substance: LEVOTHYROXINE
  5. APAP/CODEINE [Concomitant]
     Active Substance: ACETAMINOPHEN\CODEINE PHOSPHATE
  6. VELETRI [Suspect]
     Active Substance: EPOPROSTENOL
     Dosage: 3 NG/KG, PER MIN
     Route: 042
  7. DIGOX [Concomitant]
     Active Substance: DIGOXIN
  8. DOXYCYCLA [Concomitant]
  9. MUPIROCIN. [Concomitant]
     Active Substance: MUPIROCIN
  10. VELETRI [Suspect]
     Active Substance: EPOPROSTENOL
     Dosage: 5.79 NG/KG, PER MIN
     Route: 042
  11. OPSUMIT [Suspect]
     Active Substance: MACITENTAN
     Indication: PULMONARY HYPERTENSION
     Dosage: 10 MG, QD
     Route: 048
     Dates: start: 20180726
  12. FUROSEMIDE. [Concomitant]
     Active Substance: FUROSEMIDE
  13. TRAMADOL. [Concomitant]
     Active Substance: TRAMADOL
  14. ELIQUIS [Concomitant]
     Active Substance: APIXABAN
  15. POTASSIUM CHLORIDE. [Concomitant]
     Active Substance: POTASSIUM CHLORIDE
  16. VELETRI [Suspect]
     Active Substance: EPOPROSTENOL
     Indication: PULMONARY HYPERTENSION
     Dosage: 5.27 NG/KG, PER MIN
     Route: 042
  17. VELETRI [Suspect]
     Active Substance: EPOPROSTENOL
     Dosage: 6.94 NG/KG, PER MIN
     Route: 042
  18. OMEPRAZOLE. [Concomitant]
     Active Substance: OMEPRAZOLE
  19. SYMBICORT [Concomitant]
     Active Substance: BUDESONIDE\FORMOTEROL FUMARATE DIHYDRATE
  20. AMLODIPINE [Concomitant]
     Active Substance: AMLODIPINE BESYLATE
  21. METOPROLOL. [Concomitant]
     Active Substance: METOPROLOL
  22. MYCOPHENOLATE [Concomitant]
     Active Substance: MYCOPHENOLIC ACID
  23. ZINC SULFATE. [Concomitant]
     Active Substance: ZINC SULFATE

REACTIONS (27)
  - Nausea [Unknown]
  - Catheter site haemorrhage [Recovered/Resolved]
  - Gastrooesophageal reflux disease [Not Recovered/Not Resolved]
  - Hospitalisation [Unknown]
  - Discomfort [Unknown]
  - Vomiting [Unknown]
  - Pain in jaw [Unknown]
  - Peripheral swelling [Not Recovered/Not Resolved]
  - Catheter management [Unknown]
  - Device leakage [Unknown]
  - Complication associated with device [Unknown]
  - Blood pressure systolic decreased [Not Recovered/Not Resolved]
  - Product dose omission [Unknown]
  - Diarrhoea [Recovered/Resolved]
  - Arthralgia [Not Recovered/Not Resolved]
  - Memory impairment [Unknown]
  - Dyspnoea [Unknown]
  - Alanine aminotransferase increased [Unknown]
  - Dyspnoea exertional [Recovering/Resolving]
  - Device breakage [Recovered/Resolved]
  - Device malfunction [Recovered/Resolved]
  - Dizziness [Not Recovered/Not Resolved]
  - Oxygen consumption increased [Unknown]
  - Fatigue [Unknown]
  - Flushing [Not Recovered/Not Resolved]
  - Headache [Not Recovered/Not Resolved]
  - Aspartate aminotransferase increased [Unknown]

NARRATIVE: CASE EVENT DATE: 201807
